FAERS Safety Report 6049822-4 (Version None)
Quarter: 2009Q1

REPORT INFORMATION
  Report Type: 
  Country: None (occurrence: None)
  Receive Date: 20090121
  Receipt Date: 20080313
  Transmission Date: 20090719
  Serious: Yes (Life-Threatening, Other)
  Sender: FDA-Public Use
  Company Number: HQWYE734604AUG03

PATIENT
  Sex: Female

DRUGS (2)
  1. PREMPRO [Suspect]
     Dosage: EVERY DAY, ORAL
     Route: 048
  2. ESTROPIPATE [Suspect]
     Dosage: UNSPECIFIED, ORAL
     Route: 048

REACTIONS (1)
  - BREAST CANCER FEMALE [None]
